FAERS Safety Report 8202576-5 (Version None)
Quarter: 2012Q1

REPORT INFORMATION
  Report Type: 
  Country: None (occurrence: None)
  Receive Date: 20120312
  Receipt Date: 20120229
  Transmission Date: 20120608
  Serious: Yes (Hospitalization)
  Sender: FDA-Public Use
  Company Number: CA-ALLERGAN-1203069US

PATIENT
  Age: 44 Year
  Sex: Male

DRUGS (8)
  1. BOTULINUM TOXIN TYPE A [Suspect]
     Dosage: 300 UNK, UNK
  2. BOTULINUM TOXIN TYPE A [Suspect]
     Indication: PRODUCT USED FOR UNKNOWN INDICATION
     Dosage: 200 UNITS, SINGLE
     Route: 030
     Dates: start: 20120227, end: 20120227
  3. BOTULINUM TOXIN TYPE A [Suspect]
     Dosage: 300 UNK, UNK
  4. BOTULINUM TOXIN TYPE A [Suspect]
     Dosage: 300 UNK, UNK
  5. BOTULINUM TOXIN TYPE A [Suspect]
     Dosage: 300 UNK, UNK
  6. BOTULINUM TOXIN TYPE A [Suspect]
     Dosage: 300 UNK, UNK
  7. BOTULINUM TOXIN TYPE A [Suspect]
     Dosage: 300 UNK, UNK
  8. BOTULINUM TOXIN TYPE A [Suspect]
     Dosage: 300 UNK, UNK

REACTIONS (2)
  - SEPTIC SHOCK [None]
  - UROSEPSIS [None]
